FAERS Safety Report 8538678-3 (Version None)
Quarter: 2012Q3

REPORT INFORMATION
  Report Type: 
  Country: None (occurrence: None)
  Receive Date: 20120726
  Receipt Date: 20120716
  Transmission Date: 20120928
  Serious: Yes (Other)
  Sender: FDA-Public Use
  Company Number: US-BAYER-2012-072918

PATIENT
  Age: 29 Year
  Sex: Female
  Weight: 136.5 kg

DRUGS (2)
  1. MOBIC [Concomitant]
     Dosage: UNK
     Dates: start: 20120411
  2. DROSPIRENONE AND ETHINYL ESTRADIOL [Suspect]
     Dosage: UNK

REACTIONS (1)
  - VENOUS THROMBOSIS LIMB [None]
